FAERS Safety Report 9228682 (Version 1)
Quarter: 2013Q2

REPORT INFORMATION
  Report Type: Report from Study
  Country: KR (occurrence: KR)
  Receive Date: 20130412
  Receipt Date: 20130412
  Transmission Date: 20140414
  Serious: Yes (Hospitalization)
  Sender: FDA-Public Use
  Company Number: KR-PFIZER INC-2013111271

PATIENT
  Age: 39 Year
  Sex: Male

DRUGS (4)
  1. RIFAMPICIN [Suspect]
     Indication: TUBERCULOSIS
     Dosage: UNK
  2. ISONIAZID [Suspect]
     Indication: TUBERCULOSIS
     Dosage: UNK
  3. ETHAMBUTOL [Suspect]
     Indication: TUBERCULOSIS
     Dosage: UNK
  4. PYRAZINAMIDE [Suspect]
     Indication: TUBERCULOSIS
     Dosage: UNK

REACTIONS (2)
  - Drug reaction with eosinophilia and systemic symptoms [Recovered/Resolved]
  - Hepatotoxicity [None]
